FAERS Safety Report 6075975-8 (Version None)
Quarter: 2009Q1

REPORT INFORMATION
  Report Type: 
  Country: None (occurrence: None)
  Receive Date: 20090212
  Receipt Date: 20090203
  Transmission Date: 20090719
  Serious: Yes (Other)
  Sender: FDA-Public Use
  Company Number: JP-PFIZER INC-2009165739

PATIENT

DRUGS (3)
  1. NASANYL [Suspect]
     Indication: UTERINE LEIOMYOMA
     Dates: start: 20050101
  2. DEPAS [Concomitant]
  3. ZYPREXA [Concomitant]

REACTIONS (2)
  - HYPERVENTILATION [None]
  - SHOCK [None]
